FAERS Safety Report 22626363 (Version 7)
Quarter: 2023Q4

REPORT INFORMATION
  Report Type: Spontaneous
  Country: US (occurrence: US)
  Receive Date: 20230621
  Receipt Date: 20231229
  Transmission Date: 20240110
  Serious: No
  Sender: FDA-Public Use
  Company Number: US-Blueprint Medicines Corporation-SP-US-2023-000990

PATIENT
  Age: 42 Year
  Sex: Female

DRUGS (4)
  1. AYVAKIT [Suspect]
     Active Substance: AVAPRITINIB
     Indication: Systemic mastocytosis
     Route: 048
     Dates: start: 20230327
  2. AYVAKIT [Suspect]
     Active Substance: AVAPRITINIB
     Indication: Indolent systemic mastocytosis
     Route: 048
     Dates: start: 20230327
  3. AYVAKIT [Suspect]
     Active Substance: AVAPRITINIB
     Route: 048
     Dates: start: 20230327
  4. PROBIOTICS NOS [Suspect]
     Active Substance: PROBIOTICS NOS
     Indication: Gastrointestinal disorder
     Route: 065

REACTIONS (12)
  - Illness [Recovered/Resolved]
  - Peripheral coldness [Not Recovered/Not Resolved]
  - Poor peripheral circulation [Unknown]
  - Hypoaesthesia [Not Recovered/Not Resolved]
  - Dyspepsia [Not Recovered/Not Resolved]
  - Malaise [Unknown]
  - Raynaud^s phenomenon [Not Recovered/Not Resolved]
  - Pigmentation disorder [Recovering/Resolving]
  - Drug ineffective [Unknown]
  - Hair colour changes [Not Recovered/Not Resolved]
  - Vomiting [Not Recovered/Not Resolved]
  - Diarrhoea [Not Recovered/Not Resolved]

NARRATIVE: CASE EVENT DATE: 20230327
